FAERS Safety Report 5976126-8 (Version None)
Quarter: 2008Q4

REPORT INFORMATION
  Report Type: 
  Country: None (occurrence: None)
  Receive Date: 20081202
  Receipt Date: 20080430
  Transmission Date: 20090506
  Serious: Yes (Other)
  Sender: FDA-Public Use
  Company Number: US-AMGEN-QUU276028

PATIENT
  Sex: Female
  Weight: 72.2 kg

DRUGS (7)
  1. ENBREL [Suspect]
     Indication: RHEUMATOID ARTHRITIS
     Route: 058
     Dates: start: 19980201
  2. METHOTREXATE [Concomitant]
     Route: 048
     Dates: start: 19980101, end: 20080101
  3. TRAZODONE HCL [Concomitant]
  4. DEPO-MEDROL [Concomitant]
     Route: 030
  5. OXYGEN [Concomitant]
  6. FOLIC ACID [Concomitant]
  7. PREDNISONE TAB [Concomitant]

REACTIONS (6)
  - ARTHRITIS [None]
  - BREAST CANCER STAGE I [None]
  - CYSTITIS [None]
  - NEUTROPENIA [None]
  - PAIN [None]
  - SINUSITIS [None]
